FAERS Safety Report 5939304-X (Version None)
Quarter: 2008Q4

REPORT INFORMATION
  Report Type: 
  Country: None (occurrence: None)
  Receive Date: 20081103
  Receipt Date: 20081021
  Transmission Date: 20090506
  Serious: Yes (Hospitalization)
  Sender: FDA-Public Use
  Company Number: HU-AMGEN-UK309856

PATIENT
  Sex: Female

DRUGS (3)
  1. PANITUMUMAB [Suspect]
     Indication: SQUAMOUS CELL CARCINOMA
     Route: 042
     Dates: start: 20080908
  2. PANITUMUMAB - STUDY PROCEDURE [Suspect]
  3. CISPLATIN [Suspect]

REACTIONS (2)
  - DEHYDRATION [None]
  - STOMATITIS [None]
